FAERS Safety Report 7282236-8 (Version None)
Quarter: 2011Q1

REPORT INFORMATION
  Report Type: 
  Country: None (occurrence: None)
  Receive Date: 20110209
  Receipt Date: 20110125
  Transmission Date: 20110831
  Serious: Yes (Hospitalization)
  Sender: FDA-Public Use
  Company Number: CH-ELI_LILLY_AND_COMPANY-CH201101006797

PATIENT
  Age: 51 Year
  Sex: Female

DRUGS (6)
  1. REMERON [Concomitant]
     Dosage: 15 MG, DAILY (1/D)
     Route: 048
     Dates: start: 20100505
  2. ZYPREXA [Suspect]
     Dosage: 10 MG, DAILY (1/D)
     Route: 048
     Dates: start: 20100424, end: 20100603
  3. EFFEXOR [Concomitant]
     Dosage: 262.5 MG, DAILY (1/D)
     Route: 048
     Dates: start: 20100512, end: 20100527
  4. EFFEXOR [Concomitant]
     Dosage: 150 MG, DAILY (1/D)
     Route: 048
     Dates: start: 20100528, end: 20100701
  5. EFFEXOR [Concomitant]
     Dosage: 225 MG, DAILY (1/D)
     Route: 048
     Dates: start: 20100421, end: 20100504
  6. EFFEXOR [Concomitant]
     Dosage: 300 MG, DAILY (1/D)
     Route: 048
     Dates: start: 20100505, end: 20100511

REACTIONS (2)
  - DRUG INTERACTION [None]
  - SEROTONIN SYNDROME [None]
